FAERS Safety Report 15557635 (Version 3)
Quarter: 2018Q4

REPORT INFORMATION
  Report Type: Spontaneous
  Country: US (occurrence: US)
  Receive Date: 20181027
  Receipt Date: 20181127
  Transmission Date: 20190205
  Serious: Yes (Other)
  Sender: FDA-Public Use
  Company Number: US-SHIRE-US201841035

PATIENT
  Sex: Female
  Weight: 81.63 kg

DRUGS (4)
  1. FISH OIL [Concomitant]
     Active Substance: FISH OIL
     Indication: DRY EYE
  2. XIIDRA [Suspect]
     Active Substance: LIFITEGRAST
     Indication: OFF LABEL USE
     Dosage: 1 GTT, 2X/DAY:BID
     Route: 047
     Dates: start: 20181010
  3. XIIDRA [Suspect]
     Active Substance: LIFITEGRAST
     Indication: ATTENTION DEFICIT/HYPERACTIVITY DISORDER
     Dosage: 1 GTT, 2X/DAY:BID
     Route: 047
     Dates: start: 20181016
  4. XIIDRA [Suspect]
     Active Substance: LIFITEGRAST
     Indication: DRY EYE

REACTIONS (10)
  - Instillation site discharge [Unknown]
  - Instillation site lacrimation [Unknown]
  - Dysgeusia [Unknown]
  - Sjogren^s syndrome [Unknown]
  - Instillation site irritation [Unknown]
  - Off label use [Unknown]
  - Visual impairment [Unknown]
  - Product container issue [Unknown]
  - Product packaging quantity issue [Unknown]
  - Dry eye [Unknown]

NARRATIVE: CASE EVENT DATE: 2018
